FAERS Safety Report 25814296 (Version 1)
Quarter: 2025Q3

REPORT INFORMATION
  Report Type: Report from Study
  Country: US (occurrence: US)
  Receive Date: 20250917
  Receipt Date: 20250917
  Transmission Date: 20251020
  Serious: Yes (Hospitalization)
  Sender: ABBVIE
  Company Number: US-ABBVIE-6458447

PATIENT
  Age: 61 Year
  Sex: Female

DRUGS (1)
  1. RINVOQ [Suspect]
     Active Substance: UPADACITINIB
     Indication: Ankylosing spondylitis
     Route: 048
     Dates: start: 20250124

REACTIONS (9)
  - Arthralgia [Unknown]
  - Nasopharyngitis [Unknown]
  - Hypotension [Unknown]
  - Paraesthesia [Unknown]
  - Headache [Unknown]
  - Presyncope [Recovering/Resolving]
  - Tremor [Unknown]
  - Myalgia [Recovering/Resolving]
  - Hyperhidrosis [Unknown]

NARRATIVE: CASE EVENT DATE: 20250101
